FAERS Safety Report 22361506 (Version 1)
Quarter: 2023Q2

REPORT INFORMATION
  Report Type: Spontaneous
  Country: US (occurrence: US)
  Receive Date: 20230524
  Receipt Date: 20230524
  Transmission Date: 20230722
  Serious: Yes (Other)
  Sender: FDA-Public Use
  Company Number: US-UCBSA-2023025987

PATIENT
  Age: 52 Day

DRUGS (18)
  1. MIDAZOLAM [Suspect]
     Active Substance: MIDAZOLAM
     Indication: Seizure
     Dosage: 0.5 MILLIGRAM/KILOGRAM, HOURLY
     Route: 042
  2. MIDAZOLAM [Suspect]
     Active Substance: MIDAZOLAM
     Dosage: 0.1 MILLIGRAM/KILOGRAM, HOURLY
     Route: 042
  3. MIDAZOLAM [Suspect]
     Active Substance: MIDAZOLAM
     Dosage: 0.2 MILLIGRAM/KILOGRAM
     Route: 045
  4. MIDAZOLAM [Suspect]
     Active Substance: MIDAZOLAM
     Dosage: 0.9 MILLIGRAM/KILOGRAM, HOURLY
  5. LEVETIRACETAM [Suspect]
     Active Substance: LEVETIRACETAM
     Indication: Seizure
     Dosage: 60 MILLIGRAM/KILOGRAM
     Route: 042
  6. LEVETIRACETAM [Suspect]
     Active Substance: LEVETIRACETAM
     Dosage: 15 MILLIGRAM/KILOGRAM, 2X/DAY (BID)
     Route: 042
  7. LEVETIRACETAM [Suspect]
     Active Substance: LEVETIRACETAM
     Dosage: 30 MILLIGRAM/KILOGRAM, 2X/DAY (BID)
     Route: 048
  8. LORAZEPAM [Suspect]
     Active Substance: LORAZEPAM
     Indication: Seizure
     Dosage: 0.1 MILLIGRAM/KILOGRAM
     Route: 042
  9. PHENOBARBITAL [Suspect]
     Active Substance: PHENOBARBITAL
     Indication: Seizure
     Dosage: 20 MILLIGRAM/KILOGRAM
     Route: 042
  10. PHENOBARBITAL [Suspect]
     Active Substance: PHENOBARBITAL
     Dosage: 10 MILLIGRAM/KILOGRAM
     Route: 042
  11. PHENOBARBITAL [Suspect]
     Active Substance: PHENOBARBITAL
     Dosage: 4 MILLIGRAM/KILOGRAM, 2X/DAY (BID)
     Route: 048
  12. FOSPHENYTOIN [Suspect]
     Active Substance: FOSPHENYTOIN
     Indication: Seizure
     Dosage: 20 PES/KG
     Route: 042
  13. FOSPHENYTOIN [Suspect]
     Active Substance: FOSPHENYTOIN
     Dosage: 10 PES/KG
     Route: 042
  14. TOPIRAMATE [Suspect]
     Active Substance: TOPIRAMATE
     Indication: Seizure
     Dosage: 2 MILLIGRAM/KILOGRAM, 2X/DAY (BID)
     Route: 048
  15. TOPIRAMATE [Suspect]
     Active Substance: TOPIRAMATE
     Dosage: 5 MILLIGRAM/KILOGRAM, 2X/DAY (BID)
     Route: 048
  16. TOPIRAMATE [Suspect]
     Active Substance: TOPIRAMATE
     Dosage: 4.5 MILLIGRAM/KILOGRAM, 2X/DAY (BID)
     Route: 048
  17. CLOBAZAM [Concomitant]
     Active Substance: CLOBAZAM
     Indication: Seizure
     Dosage: 1 MILLIGRAM/KILOGRAM, 2X/DAY (BID)
     Route: 048
  18. LACOSAMIDE [Concomitant]
     Active Substance: LACOSAMIDE
     Indication: Seizure
     Dosage: 2 MILLIGRAM/KILOGRAM, 2X/DAY (BID)

REACTIONS (3)
  - Status epilepticus [Unknown]
  - Hypotension [Recovering/Resolving]
  - Off label use [Unknown]
